FAERS Safety Report 11349516 (Version 1)
Quarter: 2015Q3

REPORT INFORMATION
  Report Type: Spontaneous
  Country: GB (occurrence: GB)
  Receive Date: 20150807
  Receipt Date: 20150807
  Transmission Date: 20151125
  Serious: Yes (Hospitalization)
  Sender: FDA-Public Use
  Company Number: GB-TEVA-582822ACC

PATIENT
  Age: 85 Year
  Sex: Male

DRUGS (12)
  1. GABAPENTIN. [Suspect]
     Active Substance: GABAPENTIN
     Indication: ABDOMINAL PAIN
     Dosage: 300 MILLIGRAM DAILY;
     Route: 048
     Dates: end: 20150605
  2. DOCUSATE [Concomitant]
     Active Substance: DOCUSATE
  3. TAMSULOSIN [Concomitant]
     Active Substance: TAMSULOSIN
  4. PARACETAMOL [Concomitant]
     Active Substance: ACETAMINOPHEN
  5. QUETIAPINE [Concomitant]
     Active Substance: QUETIAPINE
  6. ASPIRIN. [Concomitant]
     Active Substance: ASPIRIN
  7. INSULIN GLARGINE [Concomitant]
     Active Substance: INSULIN GLARGINE
  8. LANSOPRAZOLE. [Concomitant]
     Active Substance: LANSOPRAZOLE
  9. AMLODIPINE [Concomitant]
     Active Substance: AMLODIPINE BESYLATE
  10. LISINOPRIL. [Concomitant]
     Active Substance: LISINOPRIL
  11. SIMVASTATIN. [Concomitant]
     Active Substance: SIMVASTATIN
  12. METFORMIN [Concomitant]
     Active Substance: METFORMIN HYDROCHLORIDE

REACTIONS (1)
  - Coma scale abnormal [Recovered/Resolved]
